FAERS Safety Report 11026358 (Version 1)
Quarter: 2015Q2

REPORT INFORMATION
  Report Type: Spontaneous
  Country: US (occurrence: US)
  Receive Date: 20150414
  Receipt Date: 20150414
  Transmission Date: 20150821
  Serious: Yes (Other)
  Sender: FDA-Public Use
  Company Number: US-UCBSA-2015010404

PATIENT
  Age: 47 Year
  Sex: Female

DRUGS (3)
  1. CYMBALTA [Concomitant]
     Active Substance: DULOXETINE HYDROCHLORIDE
     Indication: PRODUCT USED FOR UNKNOWN INDICATION
     Dosage: UNK
  2. XYREM [Suspect]
     Active Substance: SODIUM OXYBATE
     Indication: CHRONIC FATIGUE SYNDROME
     Dosage: 4.5 G, BID
     Route: 048
     Dates: start: 201109, end: 2011
  3. XYREM [Suspect]
     Active Substance: SODIUM OXYBATE
     Indication: OFF LABEL USE
     Dosage: 4.5 G, BID
     Route: 048
     Dates: start: 201208

REACTIONS (4)
  - Stress [Unknown]
  - Headache [Unknown]
  - Off label use [Unknown]
  - Blood pressure increased [Unknown]

NARRATIVE: CASE EVENT DATE: 201109
